FAERS Safety Report 4977535-6 (Version None)
Quarter: 2006Q2

REPORT INFORMATION
  Report Type: 
  Country: None (occurrence: None)
  Receive Date: 20060414
  Receipt Date: 20060403
  Transmission Date: 20061013
  Serious: Yes (Hospitalization)
  Sender: FDA-Public Use
  Company Number: 2006RL000117

PATIENT
  Age: 59 Year
  Sex: Female

DRUGS (3)
  1. NIZATIDINE [Suspect]
     Dosage: 150 MG; QD; PO
     Route: 048
  2. ZOLPIDEM TARTRATE [Concomitant]
  3. ATARAX [Concomitant]

REACTIONS (3)
  - LOSS OF CONSCIOUSNESS [None]
  - MALAISE [None]
  - VISUAL BRIGHTNESS [None]
